FAERS Safety Report 9906258 (Version 1)
Quarter: 2014Q1

REPORT INFORMATION
  Report Type: Spontaneous
  Country: US (occurrence: US)
  Receive Date: 20140218
  Receipt Date: 20140218
  Transmission Date: 20141002
  Serious: No
  Sender: FDA-Public Use
  Company Number: US-009507513-1402USA007977

PATIENT
  Age: 66 Year
  Sex: Female

DRUGS (8)
  1. JANUVIA [Suspect]
     Indication: TYPE 2 DIABETES MELLITUS
     Dosage: 100 MG, QD
     Route: 048
     Dates: start: 201309
  2. ALLOPURINOL [Concomitant]
  3. OMEPRAZOLE [Concomitant]
  4. TERBUTALINE SULFATE [Concomitant]
  5. DILTIAZEM HYDROCHLORIDE [Concomitant]
  6. ALEVE [Concomitant]
  7. ASPIRIN [Concomitant]
  8. GLIPIZIDE [Concomitant]
     Dosage: 10 MG, BID

REACTIONS (3)
  - Weight decreased [Unknown]
  - Tremor [Unknown]
  - Blood glucose decreased [Recovered/Resolved]
